FAERS Safety Report 5941392-1 (Version None)
Quarter: 2008Q4

REPORT INFORMATION
  Report Type: 
  Country: None (occurrence: None)
  Receive Date: 20081103
  Receipt Date: 20081016
  Transmission Date: 20090506
  Serious: Yes (Hospitalization, Other)
  Sender: FDA-Public Use
  Company Number: DSA_32364_2008

PATIENT
  Age: 37 Year
  Sex: Female

DRUGS (5)
  1. LORAZEPAM [Suspect]
     Indication: AGITATION
     Dosage: (DF)
  2. LORAZEPAM [Suspect]
     Indication: BIPOLAR I DISORDER
     Dosage: (DF)
  3. LORAZEPAM [Suspect]
     Indication: SLEEP DISORDER
     Dosage: (DF)
  4. OLANZAPINE [Suspect]
     Indication: BIPOLAR I DISORDER
     Dosage: (10 MG QD ORAL), (5 MG BID ORAL)
     Route: 048
     Dates: start: 20080501, end: 20080501
  5. OLANZAPINE [Suspect]
     Indication: BIPOLAR I DISORDER
     Dosage: (10 MG QD ORAL), (5 MG BID ORAL)
     Route: 048
     Dates: start: 20080507

REACTIONS (1)
  - NO ADVERSE EVENT [None]
